FAERS Safety Report 9856271 (Version 1)
Quarter: 2014Q1

REPORT INFORMATION
  Report Type: Report from Study
  Country: US (occurrence: US)
  Receive Date: 20140130
  Receipt Date: 20140130
  Transmission Date: 20141002
  Serious: Yes (Hospitalization, Other)
  Sender: FDA-Public Use
  Company Number: US-BAXTER-2014BAX003947

PATIENT
  Age: 55 Year
  Sex: Male
  Weight: 87.09 kg

DRUGS (4)
  1. ARALAST NP [Suspect]
     Indication: ALPHA-1 ANTI-TRYPSIN
     Route: 042
     Dates: start: 2001, end: 201310
  2. SIMBICORT [Concomitant]
     Indication: PRODUCT USED FOR UNKNOWN INDICATION
     Dosage: 80/4.5 MCG
     Route: 055
  3. OXYGEN [Concomitant]
     Indication: PRODUCT USED FOR UNKNOWN INDICATION
     Route: 055
     Dates: start: 201310
  4. SPIRIVA [Concomitant]
     Indication: PRODUCT USED FOR UNKNOWN INDICATION
     Dosage: PER CAPSULE
     Route: 055

REACTIONS (4)
  - Respiratory disorder [Not Recovered/Not Resolved]
  - Respiratory tract infection [Recovering/Resolving]
  - Fall [Recovering/Resolving]
  - Pain [Not Recovered/Not Resolved]
